FAERS Safety Report 5647945-2 (Version None)
Quarter: 2008Q1

REPORT INFORMATION
  Report Type: 
  Country: None (occurrence: None)
  Receive Date: 20080229
  Receipt Date: 20080221
  Transmission Date: 20080703
  Serious: Yes (Hospitalization)
  Sender: FDA-Public Use
  Company Number: 2008SP000030

PATIENT
  Age: 62 Year
  Sex: Male
  Weight: 86.1834 kg

DRUGS (3)
  1. RIBAVIRIN [Suspect]
     Indication: HEPATITIS C
     Dosage: 1200 MG; QD; PO
     Route: 048
     Dates: start: 20061106, end: 20070501
  2. RIBAVIRIN [Suspect]
     Indication: HEPATITIS C
     Dosage: 1200 MG; QD; PO
     Route: 048
     Dates: start: 20071221
  3. PEGASYS [Suspect]
     Indication: HEPATITIS C
     Dosage: 180 MCG; QW; SC
     Route: 058
     Dates: start: 20061106, end: 20070501

REACTIONS (7)
  - ARTHROPOD BITE [None]
  - BLOOD POTASSIUM DECREASED [None]
  - DEHYDRATION [None]
  - ENTEROCOLITIS INFECTIOUS [None]
  - NEUTROPENIA [None]
  - WEIGHT DECREASED [None]
  - WHITE BLOOD CELL COUNT DECREASED [None]
